FAERS Safety Report 8175512-8 (Version None)
Quarter: 2012Q1

REPORT INFORMATION
  Report Type: 
  Country: None (occurrence: None)
  Receive Date: 20120229
  Receipt Date: 20120221
  Transmission Date: 20120608
  Serious: Yes (Hospitalization, Other)
  Sender: FDA-Public Use
  Company Number: US-MERCK-1109USA00515

PATIENT
  Age: 59 Year
  Sex: Female
  Weight: 66 kg

DRUGS (9)
  1. FOSAMAX [Suspect]
     Route: 048
     Dates: start: 20080520, end: 20090520
  2. ZESTRIL [Concomitant]
     Indication: HYPERTENSION
     Route: 048
     Dates: start: 19960401
  3. TAMOXIFEN CITRATE [Concomitant]
     Indication: BREAST CANCER
     Route: 048
     Dates: start: 19960401
  4. FOSAMAX [Suspect]
     Route: 048
  5. ALENDRONATE SODIUM [Suspect]
     Indication: OSTEOPOROSIS
     Route: 048
     Dates: start: 20090629, end: 20091030
  6. FOSAMAX [Suspect]
     Route: 048
     Dates: start: 20060104
  7. PRILOSEC [Concomitant]
     Indication: GASTROOESOPHAGEAL REFLUX DISEASE
     Route: 048
     Dates: start: 19840101
  8. ANSAID [Concomitant]
     Route: 048
  9. FOSAMAX [Suspect]
     Indication: OSTEOPOROSIS
     Route: 048
     Dates: start: 19970916

REACTIONS (89)
  - HIP FRACTURE [None]
  - DIVERTICULUM [None]
  - ROSACEA [None]
  - SKIN LESION [None]
  - MIXED INCONTINENCE [None]
  - HYPERPARATHYROIDISM PRIMARY [None]
  - CONNECTIVE TISSUE DISORDER [None]
  - ANGER [None]
  - CYSTOCELE [None]
  - DEHYDRATION [None]
  - STRESS URINARY INCONTINENCE [None]
  - HAEMOGLOBIN DECREASED [None]
  - ADVERSE DRUG REACTION [None]
  - BLADDER DISORDER [None]
  - COUGH [None]
  - DENTAL CARIES [None]
  - LARGE INTESTINAL ULCER [None]
  - PRURITUS [None]
  - MENINGIOMA [None]
  - ANAEMIA [None]
  - DIARRHOEA [None]
  - FALL [None]
  - RECTOCELE [None]
  - CEREBRAL INFARCTION [None]
  - GASTRITIS [None]
  - DEEP VEIN THROMBOSIS [None]
  - MACULAR DEGENERATION [None]
  - URETHRAL CARUNCLE [None]
  - PSORIASIS [None]
  - INSOMNIA [None]
  - RHINORRHOEA [None]
  - MYCOBACTERIUM ABSCESSUS INFECTION [None]
  - FEMUR FRACTURE [None]
  - COLITIS [None]
  - NAUSEA [None]
  - LEUKOCYTOSIS [None]
  - CROHN'S DISEASE [None]
  - SPONDYLOLISTHESIS [None]
  - INTESTINAL STENOSIS [None]
  - URINARY TRACT INFECTION [None]
  - SKIN DISORDER [None]
  - OSTEOPENIA [None]
  - MENISCUS LESION [None]
  - INFLAMMATORY BOWEL DISEASE [None]
  - FUNGAL INFECTION [None]
  - EMBOLISM [None]
  - ANTICOAGULANT THERAPY [None]
  - ENTERITIS [None]
  - ACUTE SINUSITIS [None]
  - TOOTH FRACTURE [None]
  - DERMAL CYST [None]
  - HYPERLIPIDAEMIA [None]
  - HAEMORRHOIDS [None]
  - FAECAL INCONTINENCE [None]
  - CALCIUM DEFICIENCY [None]
  - PYREXIA [None]
  - DEPRESSION [None]
  - CYSTITIS NONINFECTIVE [None]
  - LUMBAR SPINAL STENOSIS [None]
  - OSTEOARTHRITIS [None]
  - SKIN PAPILLOMA [None]
  - TOOTH DISORDER [None]
  - RHINITIS ALLERGIC [None]
  - HYPOAESTHESIA [None]
  - MUSCLE SPASMS [None]
  - HYPERTRIGLYCERIDAEMIA [None]
  - DYSTHYMIC DISORDER [None]
  - BENIGN NEOPLASM OF SKIN [None]
  - PARATHYROID DISORDER [None]
  - HYPOKALAEMIA [None]
  - ANXIETY [None]
  - DIVERTICULUM INTESTINAL [None]
  - MALAISE [None]
  - LOWER LIMB FRACTURE [None]
  - VITAMIN D DEFICIENCY [None]
  - RASH PRURITIC [None]
  - SKIN INFECTION [None]
  - SEBACEOUS GLAND DISORDER [None]
  - HYPERCALCAEMIA [None]
  - DYSPHONIA [None]
  - DRY MOUTH [None]
  - HYPONATRAEMIA [None]
  - LYMPHOEDEMA [None]
  - PANIC ATTACK [None]
  - PANCYTOPENIA [None]
  - SEBORRHOEIC DERMATITIS [None]
  - FATIGUE [None]
  - DRUG HYPERSENSITIVITY [None]
  - BACK PAIN [None]
